FAERS Safety Report 20163644 (Version 1)
Quarter: 2021Q4

REPORT INFORMATION
  Report Type: Spontaneous
  Country: AR (occurrence: AR)
  Receive Date: 20211209
  Receipt Date: 20211209
  Transmission Date: 20220303
  Serious: Yes (Death)
  Sender: FDA-Public Use
  Company Number: AR-AUROBINDO-AUR-APL-2021-039523

PATIENT
  Age: 70 Year
  Sex: Female

DRUGS (2)
  1. BELEODAQ [Suspect]
     Active Substance: BELINOSTAT
     Indication: Non-Hodgkin^s lymphoma
     Dosage: 1000 MILLIGRAM/SQ. METER, ONCE A DAY, DAY 1-5, FIRST CYCLE
     Route: 065
     Dates: start: 202107, end: 202107
  2. BELEODAQ [Suspect]
     Active Substance: BELINOSTAT
     Dosage: 1000 MILLIGRAM/SQ. METER, DAILY, DAY 1-5, FIRST CYCLE
     Route: 065
     Dates: start: 20210819, end: 20210823

REACTIONS (2)
  - Lymphadenopathy [Fatal]
  - Disease progression [Fatal]

NARRATIVE: CASE EVENT DATE: 20210101
